FAERS Safety Report 9836477 (Version 1)
Quarter: 2014Q1

REPORT INFORMATION
  Report Type: Other
  Country: CH (occurrence: CH)
  Receive Date: 20140123
  Receipt Date: 20140123
  Transmission Date: 20141002
  Serious: Yes (Hospitalization, Other)
  Sender: FDA-Public Use
  Company Number: CH-BRISTOL-MYERS SQUIBB COMPANY-20033411

PATIENT
  Age: 51 Year
  Sex: Male

DRUGS (7)
  1. TRIAMCINOLONE ACE INJ 40 MG [Suspect]
     Indication: EPICONDYLITIS
  2. RITONAVIR [Interacting]
     Indication: HIV INFECTION
  3. FLUTICASONE [Concomitant]
     Indication: RASH
     Route: 055
  4. CLOBETASOL [Concomitant]
     Indication: RASH
     Route: 061
  5. DIDANOSINE [Concomitant]
     Indication: HIV INFECTION
  6. ETRAVIRINE [Concomitant]
     Indication: HIV INFECTION
  7. ATAZANAVIR [Concomitant]
     Indication: HIV INFECTION

REACTIONS (3)
  - Cushing^s syndrome [Recovered/Resolved]
  - Pulmonary embolism [Unknown]
  - Drug interaction [Unknown]
